FAERS Safety Report 10094495 (Version 1)
Quarter: 2014Q2

REPORT INFORMATION
  Report Type: Report from Study
  Country: CH (occurrence: CH)
  Receive Date: 20140422
  Receipt Date: 20140422
  Transmission Date: 20141212
  Serious: Yes (Hospitalization)
  Sender: FDA-Public Use
  Company Number: CH-ROCHE-1381563

PATIENT
  Age: 55 Year
  Sex: 0

DRUGS (9)
  1. PERTUZUMAB [Suspect]
     Indication: BREAST CANCER
     Dosage: DOSE AT MOST RECENT ADMINISTRATION: 420MG ON 25/MAR/2014
     Route: 042
     Dates: start: 20140120
  2. TRASTUZUMAB [Suspect]
     Indication: BREAST CANCER
     Dosage: DOSE OF LAST ADMINISTRATION WAS 385MG ON 25/MAR/2014
     Route: 042
     Dates: start: 20140120
  3. VINORELBINE [Suspect]
     Indication: BREAST CANCER
     Dosage: DOSE OF MOST RECENT ADMINISTRATION WAS 50MG ON 01/APR/2014.
     Route: 042
     Dates: start: 20140120
  4. ATENOLOL [Concomitant]
     Route: 048
     Dates: end: 20140401
  5. AMLODIPINE [Concomitant]
     Route: 048
     Dates: end: 20140401
  6. METFIN [Concomitant]
     Route: 048
  7. DIAMICRON [Concomitant]
     Route: 048
  8. SIMVASTATIN [Concomitant]
     Route: 048
  9. SERETIDE [Concomitant]
     Route: 048

REACTIONS (1)
  - Presyncope [Recovered/Resolved]
